FAERS Safety Report 25169825 (Version 1)
Quarter: 2025Q2

REPORT INFORMATION
  Report Type: Spontaneous
  Country: US (occurrence: US)
  Receive Date: 20250407
  Receipt Date: 20250407
  Transmission Date: 20250716
  Serious: Yes (Other)
  Sender: BAYER
  Company Number: US-BAYER-2025A042166

PATIENT
  Age: 71 Year
  Sex: Female

DRUGS (15)
  1. STIVARGA [Suspect]
     Active Substance: REGORAFENIB MONOHYDRATE
     Indication: Colon cancer
     Dates: start: 20250304
  2. STIVARGA [Suspect]
     Active Substance: REGORAFENIB MONOHYDRATE
     Indication: Pulmonary embolism
  3. STIVARGA [Suspect]
     Active Substance: REGORAFENIB MONOHYDRATE
     Indication: Rectal cancer
  4. LORAZEPAM [Concomitant]
     Active Substance: LORAZEPAM
  5. METOCLOPRAMIDE [Concomitant]
     Active Substance: METOCLOPRAMIDE
  6. ALDACTONE [Concomitant]
     Active Substance: SPIRONOLACTONE
  7. ELIQUIS [Concomitant]
     Active Substance: APIXABAN
  8. FUROSEMIDE [Concomitant]
     Active Substance: FUROSEMIDE
  9. MEGESTROL [Concomitant]
     Active Substance: MEGESTROL
     Route: 048
  10. MINOCYCLINE [Concomitant]
     Active Substance: MINOCYCLINE HYDROCHLORIDE
  11. ONDANSETRON HYDROCHLORIDE [Concomitant]
     Active Substance: ONDANSETRON HYDROCHLORIDE
  12. POTASSIUM CHLORIDE [Concomitant]
     Active Substance: POTASSIUM CHLORIDE
  13. PREGABALIN [Concomitant]
     Active Substance: PREGABALIN
  14. PROCHLORPERAZINE MALEATE [Concomitant]
     Active Substance: PROCHLORPERAZINE MALEATE
  15. ROSUVASTATIN [Concomitant]
     Active Substance: ROSUVASTATIN

REACTIONS (13)
  - Abdominal pain [None]
  - Adenocarcinoma metastatic [None]
  - Metastases to lymph nodes [None]
  - Signet-ring cell carcinoma [None]
  - Ascites [None]
  - Nausea [Not Recovered/Not Resolved]
  - Vomiting [Not Recovered/Not Resolved]
  - Metastatic neoplasm [None]
  - Ovarian mass [None]
  - Pulmonary mass [None]
  - Metastases to peritoneum [None]
  - Haematuria [Recovering/Resolving]
  - Constipation [None]

NARRATIVE: CASE EVENT DATE: 20250301
